FAERS Safety Report 9150105 (Version 2)
Quarter: 2013Q1

REPORT INFORMATION
  Report Type: Spontaneous
  Country: PR (occurrence: None)
  Receive Date: 20130204
  Receipt Date: 20130226
  Transmission Date: 20140127
  Serious: Yes (Other)
  Sender: FDA-Public Use
  Company Number: 2013US0051

PATIENT
  Age: 16 Month
  Sex: Female

DRUGS (1)
  1. ORFADIN [Suspect]
     Dosage: 10 MG, 2 IN 1 D
     Dates: start: 20110924

REACTIONS (4)
  - Haematoma [None]
  - Erythema [None]
  - Skin discolouration [None]
  - Genital erythema [None]
